FAERS Safety Report 19203272 (Version 2)
Quarter: 2021Q4

REPORT INFORMATION
  Report Type: Spontaneous
  Country: US (occurrence: None)
  Receive Date: 20210430
  Receipt Date: 20211210
  Transmission Date: 20220303
  Serious: Yes (Other)
  Sender: FDA-Public Use
  Company Number: 2021A363209

PATIENT
  Age: 41 Year
  Sex: Female
  Weight: 100.2 kg

DRUGS (44)
  1. NEXIUM [Suspect]
     Active Substance: ESOMEPRAZOLE MAGNESIUM
     Indication: Dyspepsia
     Route: 048
     Dates: start: 2005, end: 2018
  2. NEXIUM [Suspect]
     Active Substance: ESOMEPRAZOLE MAGNESIUM
     Indication: Dyspepsia
     Route: 048
     Dates: start: 2005, end: 2018
  3. PRILOSEC OTC [Suspect]
     Active Substance: OMEPRAZOLE MAGNESIUM
     Indication: Dyspepsia
     Route: 048
     Dates: start: 2005, end: 2018
  4. PRILOSEC OTC [Suspect]
     Active Substance: OMEPRAZOLE MAGNESIUM
     Indication: Dyspepsia
     Dosage: DOSAGE AS RECOMMENDED
     Route: 048
     Dates: start: 2005, end: 2018
  5. PRILOSEC [Suspect]
     Active Substance: OMEPRAZOLE MAGNESIUM
     Indication: Dyspepsia
     Route: 048
     Dates: start: 2018, end: 2020
  6. PRILOSEC [Suspect]
     Active Substance: OMEPRAZOLE MAGNESIUM
     Indication: Dyspepsia
     Dosage: GENERIC
     Route: 065
     Dates: end: 2020
  7. PROTONIX [Suspect]
     Active Substance: PANTOPRAZOLE SODIUM
     Indication: Dyspepsia
     Route: 065
     Dates: start: 2005, end: 2018
  8. PROTONIX [Suspect]
     Active Substance: PANTOPRAZOLE SODIUM
     Indication: Dyspepsia
     Route: 065
     Dates: start: 2005, end: 2018
  9. PROTONIX [Suspect]
     Active Substance: PANTOPRAZOLE SODIUM
     Indication: Dyspepsia
     Dosage: GENERIC
     Route: 065
  10. TRAMADOL [Concomitant]
     Active Substance: TRAMADOL
     Indication: Pain
     Route: 065
     Dates: start: 2010
  11. TRAMADOL [Concomitant]
     Active Substance: TRAMADOL
     Indication: Pain
     Route: 065
     Dates: start: 2011
  12. TRAMADOL [Concomitant]
     Active Substance: TRAMADOL
     Indication: Pain
     Route: 065
     Dates: start: 2014
  13. AZITHROMYCIN [Concomitant]
     Active Substance: AZITHROMYCIN
     Indication: Infection
     Route: 065
     Dates: start: 2015
  14. CEFAZOLIN [Concomitant]
     Active Substance: CEFAZOLIN
     Indication: Infection
     Route: 065
     Dates: start: 2017
  15. CIPROFLOXACIN [Concomitant]
     Active Substance: CIPROFLOXACIN
     Indication: Infection
     Route: 065
     Dates: start: 2013
  16. FUROSEMIDE [Concomitant]
     Active Substance: FUROSEMIDE
     Route: 065
     Dates: start: 2016, end: 2019
  17. CLOPIDOGREL [Concomitant]
     Active Substance: CLOPIDOGREL BISULFATE
     Indication: Anticoagulant therapy
     Route: 065
     Dates: start: 2017
  18. NAPROXEN [Concomitant]
     Active Substance: NAPROXEN
     Indication: Pain
     Route: 065
     Dates: start: 2013
  19. ATORVASTATIN [Concomitant]
     Active Substance: ATORVASTATIN
     Indication: Blood pressure abnormal
     Route: 065
     Dates: start: 2016
  20. ATORVASTATIN [Concomitant]
     Active Substance: ATORVASTATIN
     Indication: Blood pressure abnormal
     Route: 065
     Dates: start: 2017
  21. ASPIRIN [Concomitant]
     Active Substance: ASPIRIN
     Indication: Cardiac disorder
     Route: 065
  22. TYLENOL [Concomitant]
     Active Substance: ACETAMINOPHEN
     Indication: Pain
  23. VITAMINS [Concomitant]
     Active Substance: VITAMINS
     Indication: Routine health maintenance
  24. FAMOTIDINE [Concomitant]
     Active Substance: FAMOTIDINE
     Route: 065
     Dates: start: 2013, end: 2014
  25. OXYCODONE [Concomitant]
     Active Substance: OXYCODONE
  26. METHOCARBAMOL [Concomitant]
     Active Substance: METHOCARBAMOL
  27. CYCLOBENZAPRINE [Concomitant]
     Active Substance: CYCLOBENZAPRINE
  28. LORAZEPAM [Concomitant]
     Active Substance: LORAZEPAM
  29. CRAVEDILOL [Concomitant]
  30. METHADONE [Concomitant]
     Active Substance: METHADONE HYDROCHLORIDE
  31. HYDRALAZINE [Concomitant]
     Active Substance: HYDRALAZINE HYDROCHLORIDE
  32. ISOSORBIDE MONONITRATE [Concomitant]
     Active Substance: ISOSORBIDE MONONITRATE
  33. GABAPENTIN [Concomitant]
     Active Substance: GABAPENTIN
  34. FOLIC ACID [Concomitant]
     Active Substance: FOLIC ACID
  35. AMLODIPINE [Concomitant]
     Active Substance: AMLODIPINE BESYLATE
  36. TERAZOSIN [Concomitant]
     Active Substance: TERAZOSIN HYDROCHLORIDE
  37. ACETAMINOPHEN\HYDROCODONE [Concomitant]
     Active Substance: ACETAMINOPHEN\HYDROCODONE
  38. METFORMIN [Concomitant]
     Active Substance: METFORMIN HYDROCHLORIDE
  39. DOXYCYCLINE [Concomitant]
     Active Substance: DOXYCYCLINE
  40. WARFARIN [Concomitant]
     Active Substance: WARFARIN
  41. NITROSTAT [Concomitant]
     Active Substance: NITROGLYCERIN
  42. ZOLPIDEM [Concomitant]
     Active Substance: ZOLPIDEM TARTRATE
  43. CLONIDINE [Concomitant]
     Active Substance: CLONIDINE
  44. ONDANSETRON [Concomitant]
     Active Substance: ONDANSETRON

REACTIONS (6)
  - Acute kidney injury [Not Recovered/Not Resolved]
  - Chronic kidney disease [Not Recovered/Not Resolved]
  - End stage renal disease [Not Recovered/Not Resolved]
  - Nephrogenic anaemia [Unknown]
  - Hyperparathyroidism secondary [Unknown]
  - Dyspepsia [Not Recovered/Not Resolved]

NARRATIVE: CASE EVENT DATE: 20150101
